FAERS Safety Report 25555175 (Version 1)
Quarter: 2025Q3

REPORT INFORMATION
  Report Type: Spontaneous
  Country: US (occurrence: None)
  Receive Date: 20250714
  Receipt Date: 20250714
  Transmission Date: 20251020
  Serious: Yes (Hospitalization)
  Sender: FDA-CTU
  Company Number: None

PATIENT
  Age: 78 Year
  Sex: Male
  Weight: 91 kg

DRUGS (1)
  1. PADCEV [Suspect]
     Active Substance: ENFORTUMAB VEDOTIN-EJFV
     Indication: Transitional cell carcinoma
     Route: 041
     Dates: start: 20250402, end: 20250417

REACTIONS (6)
  - Renal impairment [None]
  - Dehydration [None]
  - Asthenia [None]
  - Hyperglycaemia [None]
  - Diabetic ketoacidosis [None]
  - Laboratory test abnormal [None]

NARRATIVE: CASE EVENT DATE: 20250417
